FAERS Safety Report 9542935 (Version 1)
Quarter: 2013Q3

REPORT INFORMATION
  Report Type: Spontaneous
  Country: DE (occurrence: DE)
  Receive Date: 20130923
  Receipt Date: 20130923
  Transmission Date: 20140515
  Serious: Yes (Other)
  Sender: FDA-Public Use
  Company Number: DE-GILEAD-2013-0083860

PATIENT
  Age: 70 Year
  Sex: Male

DRUGS (1)
  1. RANOLAZINE [Suspect]
     Indication: CARDIAC FAILURE
     Dosage: 375 MG, BID
     Route: 048
     Dates: start: 20130821

REACTIONS (2)
  - Feeling cold [Recovered/Resolved]
  - Ventricular fibrillation [Recovered/Resolved]
